FAERS Safety Report 5902097-6 (Version None)
Quarter: 2008Q3

REPORT INFORMATION
  Report Type: 
  Country: None (occurrence: None)
  Receive Date: 20080929
  Receipt Date: 20080917
  Transmission Date: 20090109
  Serious: Yes (Hospitalization, Other)
  Sender: FDA-Public Use
  Company Number: JP-PFIZER INC-2008068103

PATIENT
  Sex: Male
  Weight: 60 kg

DRUGS (17)
  1. DIFLUCAN [Suspect]
     Indication: CYSTITIS
     Dates: start: 20080722, end: 20080811
  2. ASPIRIN [Concomitant]
     Route: 048
  3. PRAVASTATIN SODIUM [Concomitant]
     Route: 048
  4. BASEN [Concomitant]
     Route: 048
  5. NICORANDIL [Concomitant]
     Route: 048
  6. PLETAL [Concomitant]
     Route: 048
     Dates: start: 20080811
  7. BIO THREE [Concomitant]
     Route: 048
  8. BENZALIN [Concomitant]
     Route: 048
  9. CRAVIT [Concomitant]
     Route: 048
     Dates: start: 20080801, end: 20080808
  10. TAMSULOSIN HCL [Concomitant]
     Route: 048
     Dates: start: 20080801, end: 20080808
  11. COTRIM [Concomitant]
     Route: 048
     Dates: start: 20080808, end: 20080820
  12. ASPARA [Concomitant]
     Route: 048
     Dates: start: 20080811, end: 20080812
  13. NOVOLIN R [Concomitant]
     Route: 058
  14. NOVOLIN R [Concomitant]
     Route: 058
     Dates: start: 20080812
  15. XYLOCAINE [Concomitant]
     Dates: start: 20080810
  16. AMISALIN [Concomitant]
     Dates: start: 20080810
  17. DIGOSIN [Concomitant]
     Dates: end: 20080811

REACTIONS (1)
  - ARRHYTHMIA [None]
